FAERS Safety Report 4662974-3 (Version None)
Quarter: 2005Q2

REPORT INFORMATION
  Report Type: 
  Country: None (occurrence: None)
  Receive Date: 20050516
  Receipt Date: 20040827
  Transmission Date: 20051028
  Serious: Yes (Life-Threatening, Hospitalization)
  Sender: FDA-Public Use
  Company Number: DE-MERCK-0408DEU00191

PATIENT
  Age: 77 Year
  Sex: Male

DRUGS (2)
  1. VIOXX [Suspect]
     Indication: SPINAL OSTEOARTHRITIS
     Route: 048
     Dates: start: 20040701, end: 20040701
  2. VIOXX [Suspect]
     Route: 048
     Dates: start: 20040701, end: 20040701

REACTIONS (5)
  - CARDIAC FAILURE [None]
  - GOUT [None]
  - HYPERTENSION [None]
  - MYOCARDIAL ISCHAEMIA [None]
  - RENAL FAILURE [None]
